FAERS Safety Report 6786033-9 (Version None)
Quarter: 2010Q2

REPORT INFORMATION
  Report Type: 
  Country: None (occurrence: None)
  Receive Date: 20100623
  Receipt Date: 20100609
  Transmission Date: 20101027
  Serious: Yes (Hospitalization, Disabling, Other)
  Sender: FDA-Public Use
  Company Number: PHHY2010AU23290

PATIENT
  Sex: Male
  Weight: 74 kg

DRUGS (6)
  1. CLOZARIL [Suspect]
     Dosage: 400 MG, UNK
     Route: 048
     Dates: start: 20060207, end: 20100401
  2. CLOZARIL [Suspect]
     Dosage: UNK
  3. VALPROATE SODIUM [Concomitant]
  4. LAMOTRIGINE [Concomitant]
  5. BENZTROPINE MESYLATE [Concomitant]
  6. RISPERDAL [Concomitant]

REACTIONS (28)
  - ABNORMAL BEHAVIOUR [None]
  - ALTERED STATE OF CONSCIOUSNESS [None]
  - ANION GAP INCREASED [None]
  - BLOOD LACTATE DEHYDROGENASE INCREASED [None]
  - BLOOD PHOSPHORUS INCREASED [None]
  - BLOOD UREA DECREASED [None]
  - BLOOD URIC ACID INCREASED [None]
  - CALCIUM IONISED DECREASED [None]
  - CARDIAC DISORDER [None]
  - CIRCULATORY COLLAPSE [None]
  - CONFUSIONAL STATE [None]
  - DEPRESSION [None]
  - DIZZINESS [None]
  - DRUG DOSE OMISSION [None]
  - ELECTROCARDIOGRAM QT PROLONGED [None]
  - FATIGUE [None]
  - HYPERTONIA [None]
  - HYPOTENSION [None]
  - INSOMNIA [None]
  - LOOSE ASSOCIATIONS [None]
  - LOSS OF CONSCIOUSNESS [None]
  - MEMORY IMPAIRMENT [None]
  - ORTHOSTATIC HYPOTENSION [None]
  - OVERDOSE [None]
  - RED CELL DISTRIBUTION WIDTH INCREASED [None]
  - SOMNOLENCE [None]
  - UNRESPONSIVE TO STIMULI [None]
  - VOMITING [None]
